FAERS Safety Report 6564387-6 (Version None)
Quarter: 2010Q1

REPORT INFORMATION
  Report Type: 
  Country: None (occurrence: None)
  Receive Date: 20100201
  Receipt Date: 20100126
  Transmission Date: 20100710
  Serious: Yes (Death)
  Sender: FDA-Public Use
  Company Number: US-CELGENEUS-163-21880-09092173

PATIENT
  Sex: Female

DRUGS (2)
  1. REVLIMID [Suspect]
     Route: 048
     Dates: start: 20070801, end: 20080513
  2. REVLIMID [Suspect]
     Dosage: 5MG, 10MG
     Route: 048
     Dates: start: 20070313, end: 20070101

REACTIONS (1)
  - MYOCARDIAL INFARCTION [None]
